FAERS Safety Report 23137632 (Version 1)
Quarter: 2023Q4

REPORT INFORMATION
  Report Type: Spontaneous
  Country: CA (occurrence: CA)
  Receive Date: 20231102
  Receipt Date: 20231102
  Transmission Date: 20240109
  Serious: Yes (Other)
  Sender: FDA-Public Use
  Company Number: CA-BAYER-2023A154718

PATIENT
  Age: 42 Year
  Sex: Male

DRUGS (2)
  1. XARELTO [Suspect]
     Active Substance: RIVAROXABAN
     Indication: Product used for unknown indication
     Route: 048
  2. INFLIXIMAB [Suspect]
     Active Substance: INFLIXIMAB
     Dosage: UNK

REACTIONS (5)
  - Skeletal injury [Recovering/Resolving]
  - Faeces soft [Unknown]
  - Bone swelling [Unknown]
  - Skin abrasion [Unknown]
  - Ecchymosis [Recovering/Resolving]

NARRATIVE: CASE EVENT DATE: 20231006
